FAERS Safety Report 7559034-0 (Version None)
Quarter: 2011Q2

REPORT INFORMATION
  Report Type: 
  Country: None (occurrence: None)
  Receive Date: 20110621
  Receipt Date: 20110620
  Transmission Date: 20111010
  Serious: No
  Sender: FDA-Public Use
  Company Number: US-PFIZER INC-2011135999

PATIENT
  Sex: Male
  Weight: 119 kg

DRUGS (6)
  1. PRISTIQ [Suspect]
     Indication: DEPRESSION
     Dosage: 50 MG, DAILY
     Route: 048
     Dates: start: 20110601, end: 20110601
  2. LEXAPRO [Concomitant]
     Indication: ANXIETY
  3. LEXAPRO [Concomitant]
     Indication: DEPRESSION
     Dosage: 10 MG, UNK
     Route: 048
     Dates: end: 20110601
  4. PROZAC [Concomitant]
     Indication: ANXIETY
  5. PRISTIQ [Suspect]
     Indication: ANXIETY
  6. PROZAC [Concomitant]
     Indication: DEPRESSION
     Dosage: 20 MG, UNK
     Dates: end: 20110601

REACTIONS (1)
  - URINE FLOW DECREASED [None]
